FAERS Safety Report 4876166-6 (Version None)
Quarter: 2005Q4

REPORT INFORMATION
  Report Type: 
  Country: None (occurrence: None)
  Receive Date: 20051205
  Receipt Date: 20050914
  Transmission Date: 20060501
  Serious: Yes (Other)
  Sender: FDA-Public Use
  Company Number: USA0509107290

PATIENT
  Age: 19 Year
  Sex: Female
  Weight: 140 kg

DRUGS (5)
  1. ALIMTA [Suspect]
     Indication: MESOTHELIOMA
     Dosage: 1190 MG
     Dates: start: 20040802, end: 20050614
  2. CISPLATIN [Concomitant]
  3. VITAMIN B-12 [Concomitant]
  4. FOLIC ACID [Concomitant]
  5. CORTICOSTEROID NOS [Concomitant]

REACTIONS (1)
  - RENAL FAILURE ACUTE [None]
